FAERS Safety Report 9263952 (Version 1)
Quarter: 2013Q2

REPORT INFORMATION
  Report Type: Spontaneous
  Country: IT (occurrence: IT)
  Receive Date: 20130430
  Receipt Date: 20130430
  Transmission Date: 20140414
  Serious: Yes (Hospitalization, Other)
  Sender: FDA-Public Use
  Company Number: IT-BRISTOL-MYERS SQUIBB COMPANY-18814871

PATIENT
  Age: 85 Year
  Sex: Female

DRUGS (7)
  1. COUMADIN TABS 5 MG [Suspect]
     Indication: ATRIAL FIBRILLATION
     Route: 048
     Dates: start: 20120101, end: 20130301
  2. FUROSEMIDE [Concomitant]
  3. PANTOPRAZOLE SODIUM [Concomitant]
  4. DEPONIT [Concomitant]
     Route: 062
  5. CONGESCOR [Concomitant]
  6. LUVION [Concomitant]
  7. XANAX [Concomitant]
     Dosage: 0.75 MG/ML ORAL DROPS SOLUTION
     Route: 048

REACTIONS (2)
  - Subdural haemorrhage [Recovering/Resolving]
  - Fall [Unknown]
